FAERS Safety Report 25297864 (Version 1)
Quarter: 2025Q2

REPORT INFORMATION
  Report Type: Spontaneous
  Country: US (occurrence: US)
  Receive Date: 20250512
  Receipt Date: 20250512
  Transmission Date: 20250716
  Serious: No
  Sender: UCB
  Company Number: US-UCBSA-2024040893

PATIENT
  Sex: Male
  Weight: 126.98 kg

DRUGS (3)
  1. CIMZIA [Suspect]
     Active Substance: CERTOLIZUMAB PEGOL
     Indication: Psoriasis
  2. TALTZ [Concomitant]
     Active Substance: IXEKIZUMAB
     Indication: Psoriasis
  3. SILIQ [Concomitant]
     Active Substance: BRODALUMAB
     Indication: Psoriasis

REACTIONS (3)
  - Treatment failure [Unknown]
  - Contraindicated product administered [Unknown]
  - Drug intolerance [Unknown]
